FAERS Safety Report 7821285-5 (Version None)
Quarter: 2011Q4

REPORT INFORMATION
  Report Type: 
  Country: None (occurrence: None)
  Receive Date: 20111018
  Receipt Date: 20101104
  Transmission Date: 20120403
  Serious: No
  Sender: FDA-Public Use
  Company Number: US-ASTRAZENECA-2010SE52703

PATIENT
  Sex: Female

DRUGS (2)
  1. ALBUTEROL [Concomitant]
  2. SYMBICORT [Suspect]
     Indication: ASTHMA
     Route: 055
     Dates: start: 20101001

REACTIONS (2)
  - INCREASED UPPER AIRWAY SECRETION [None]
  - HEADACHE [None]
